FAERS Safety Report 6692062-6 (Version None)
Quarter: 2010Q2

REPORT INFORMATION
  Report Type: 
  Country: None (occurrence: None)
  Receive Date: 20100422
  Receipt Date: 20100414
  Transmission Date: 20101027
  Serious: Yes (Other)
  Sender: FDA-Public Use
  Company Number: PHHY2010JP16627

PATIENT
  Sex: Male

DRUGS (2)
  1. VOLTAREN [Suspect]
     Dosage: UNK
     Route: 054
  2. AMAZOLON [Suspect]
     Route: 048

REACTIONS (3)
  - DEMENTIA [None]
  - HALLUCINATION, VISUAL [None]
  - PORIOMANIA [None]
